FAERS Safety Report 13109707 (Version 2)
Quarter: 2017Q1

REPORT INFORMATION
  Report Type: Spontaneous
  Country: DE (occurrence: DE)
  Receive Date: 20170112
  Receipt Date: 20170321
  Transmission Date: 20170428
  Serious: Yes (Death, Hospitalization)
  Sender: FDA-Public Use
  Company Number: DE-SA-2017SA003753

PATIENT
  Age: 61 Year
  Sex: Female
  Weight: 45 kg

DRUGS (6)
  1. GABAPENTIN. [Concomitant]
     Active Substance: GABAPENTIN
     Dosage: 400-800-800 / MG / TID / 2000MG?1-2-2
  2. TRAMADOL. [Concomitant]
     Active Substance: TRAMADOL
     Dosage: 1-0-1
     Route: 048
  3. BACLOFEN. [Concomitant]
     Active Substance: BACLOFEN
     Dosage: 25-25-12.5 / MG / TID / 62.5 MG?1-1-1/2
  4. RAMIPRIL. [Concomitant]
     Active Substance: RAMIPRIL
     Dosage: 1-0-0
  5. AUBAGIO [Suspect]
     Active Substance: TERIFLUNOMIDE
     Indication: MULTIPLE SCLEROSIS
     Route: 048
     Dates: end: 20170109
  6. DULOXETINE. [Concomitant]
     Active Substance: DULOXETINE
     Dosage: 1-1-1

REACTIONS (17)
  - Hemiparesis [Unknown]
  - Hypertension [Unknown]
  - Brain contusion [Unknown]
  - Brain oedema [Unknown]
  - Tachycardia [Unknown]
  - Fall [Unknown]
  - Nervous system disorder [Unknown]
  - Restlessness [Unknown]
  - Coma [Unknown]
  - Pneumonia aspiration [Unknown]
  - Sepsis [Fatal]
  - Dysphagia [Unknown]
  - Delirium [Unknown]
  - Brain stem haemorrhage [Unknown]
  - Craniocerebral injury [Unknown]
  - Bradycardia [Unknown]
  - Cardiac arrest [Fatal]

NARRATIVE: CASE EVENT DATE: 20161228
